FAERS Safety Report 24107524 (Version 1)
Quarter: 2024Q3

REPORT INFORMATION
  Report Type: Spontaneous
  Country: CA (occurrence: CA)
  Receive Date: 20240718
  Receipt Date: 20240718
  Transmission Date: 20241017
  Serious: Yes (Other)
  Sender: NOVO NORDISK
  Company Number: None

PATIENT
  Age: 8 Year
  Sex: Male

DRUGS (2)
  1. NORDITROPIN [Suspect]
     Active Substance: SOMATROPIN
     Dosage: 1.2 MG, QW
     Route: 058
  2. NORDITROPIN [Suspect]
     Active Substance: SOMATROPIN
     Indication: Short stature
     Dosage: 1.05 MG, QW
     Route: 058

REACTIONS (4)
  - Disease recurrence [Recovered/Resolved]
  - Hypoglycaemia [Recovered/Resolved]
  - Unresponsive to stimuli [Recovered/Resolved]
  - Inappropriate schedule of product administration [Unknown]
